FAERS Safety Report 4759384-7 (Version None)
Quarter: 2005Q3

REPORT INFORMATION
  Report Type: 
  Country: None (occurrence: None)
  Receive Date: 20050826
  Receipt Date: 20050617
  Transmission Date: 20060218
  Serious: No
  Sender: FDA-Public Use
  Company Number: 213247

PATIENT
  Age: 35 Year
  Sex: Female
  Weight: 58 kg

DRUGS (5)
  1. RAPTIVA [Suspect]
     Indication: PSORIASIS
     Dosage: 1 MG/KG,1/WEEK,SUBCUTANEOUS; 0.4 ML, 1/WEEK, SUBCUTANEOUS
     Route: 058
     Dates: start: 20040923, end: 20050301
  2. RAPTIVA [Suspect]
     Indication: PSORIASIS
     Dosage: 1 MG/KG,1/WEEK,SUBCUTANEOUS; 0.4 ML, 1/WEEK, SUBCUTANEOUS
     Route: 058
     Dates: start: 20050426
  3. HUMIBID (GUAIFENESIN) [Concomitant]
  4. BIAXIN [Concomitant]
  5. BIRTH CONTROL PILL (ORAL CONTRACEPTIVE NOS) [Concomitant]

REACTIONS (1)
  - MENORRHAGIA [None]
